FAERS Safety Report 7906694-8 (Version None)
Quarter: 2011Q4

REPORT INFORMATION
  Report Type: 
  Country: None (occurrence: None)
  Receive Date: 20111109
  Receipt Date: 20111109
  Transmission Date: 20120403
  Serious: Yes (Hospitalization)
  Sender: FDA-Public Use
  Company Number: None

PATIENT
  Age: 78 Year
  Sex: Female
  Weight: 79.3795 kg

DRUGS (1)
  1. RECLAST [Suspect]
     Indication: BONE DISORDER
     Dosage: 1 TIME A YEAR GIVEN BY INNEVEINOUS
     Route: 042
     Dates: start: 20110929

REACTIONS (5)
  - NAUSEA [None]
  - DIZZINESS [None]
  - PAIN [None]
  - PAIN IN EXTREMITY [None]
  - ARTHRALGIA [None]
